FAERS Safety Report 7829422-3 (Version None)
Quarter: 2011Q4

REPORT INFORMATION
  Report Type: 
  Country: None (occurrence: None)
  Receive Date: 20111020
  Receipt Date: 20111007
  Transmission Date: 20120403
  Serious: Yes (Other)
  Sender: FDA-Public Use
  Company Number: JP-WATSON-2011-15264

PATIENT
  Age: 65 Year
  Sex: Male

DRUGS (4)
  1. FLUOROURACIL [Suspect]
     Indication: RECTAL CANCER STAGE IV
     Dosage: 750 MG, DAILY (CONTINUOUS DRIP)
     Route: 065
     Dates: start: 20060301
  2. FLUOROURACIL [Suspect]
     Dosage: 450 MG, DAILY (RAPID INFUSION)
     Route: 065
     Dates: start: 20060301
  3. OXALIPLATIN [Suspect]
     Indication: RECTAL CANCER STAGE IV
     Dosage: 100 MG, UNKNOWN
     Route: 065
     Dates: start: 20060301
  4. LEVOLEUCOVORIN CALCIUM [Suspect]
     Indication: RECTAL CANCER STAGE IV
     Dosage: 150 MG, DAILY
     Route: 065
     Dates: start: 20060301

REACTIONS (2)
  - HYPOAESTHESIA [None]
  - HYPERSENSITIVITY [None]
